FAERS Safety Report 5404957-1 (Version None)
Quarter: 2007Q3

REPORT INFORMATION
  Report Type: 
  Country: None (occurrence: None)
  Receive Date: 20070801
  Receipt Date: 20070719
  Transmission Date: 20080115
  Serious: Yes (Other)
  Sender: FDA-Public Use
  Company Number: CERZ-11798

PATIENT
  Sex: Male
  Weight: 84 kg

DRUGS (1)
  1. CEREZYME [Suspect]
     Indication: GAUCHER'S DISEASE
     Dosage: 5200 UNITS Q2WKS IV
     Route: 042
     Dates: start: 19970408

REACTIONS (2)
  - FALL [None]
  - FEMUR FRACTURE [None]
